FAERS Safety Report 24555183 (Version 1)
Quarter: 2024Q4

REPORT INFORMATION
  Report Type: Spontaneous
  Country: FR (occurrence: FR)
  Receive Date: 20241028
  Receipt Date: 20241028
  Transmission Date: 20250114
  Serious: Yes (Hospitalization)
  Sender: RANBAXY
  Company Number: FR-SUN PHARMACEUTICAL INDUSTRIES LTD-2024RR-475380

PATIENT
  Age: 36 Year
  Sex: Female

DRUGS (4)
  1. GANIRELIX ACETATE [Suspect]
     Active Substance: GANIRELIX ACETATE
     Indication: Oocyte harvest
     Dosage: 1 DOSAGE FORM, DAILY
     Route: 058
     Dates: start: 202306
  2. CHORIOGONADOTROPIN ALFA [Suspect]
     Active Substance: CHORIOGONADOTROPIN ALFA
     Indication: Oocyte harvest
     Dosage: 1 DOSAGE FORM, TOTAL 1
     Route: 058
     Dates: start: 20230620
  3. FOLLITROPIN\LUTEINIZING HORMONE [Suspect]
     Active Substance: FOLLITROPIN\LUTEINIZING HORMONE
     Indication: Oocyte harvest
     Dosage: 225 INTERNATIONAL UNIT, DAILY
     Route: 058
     Dates: start: 202305
  4. FOLLITROPIN\LUTEINIZING HORMONE [Suspect]
     Active Substance: FOLLITROPIN\LUTEINIZING HORMONE
     Dosage: 150 INTERNATIONAL UNIT, DAILY
     Route: 065
     Dates: start: 202305

REACTIONS (1)
  - Ovarian hyperstimulation syndrome [Recovered/Resolved]

NARRATIVE: CASE EVENT DATE: 20230629
